FAERS Safety Report 18524961 (Version 2)
Quarter: 2021Q2

REPORT INFORMATION
  Report Type: Report from Study
  Country: US (occurrence: US)
  Receive Date: 20201119
  Receipt Date: 20210608
  Transmission Date: 20210717
  Serious: Yes (Other)
  Sender: FDA-Public Use
  Company Number: US-LUNDBECK-DKLU3023367

PATIENT
  Age: 47 Year
  Sex: Female

DRUGS (5)
  1. TOPAMAX [Concomitant]
     Active Substance: TOPIRAMATE
     Indication: MIGRAINE PROPHYLAXIS
     Route: 065
  2. TIZANIDINE. [Concomitant]
     Active Substance: TIZANIDINE
     Indication: MIGRAINE
     Route: 065
  3. CLONAZEPAM. [Concomitant]
     Active Substance: CLONAZEPAM
     Indication: MIGRAINE
     Route: 065
  4. VYEPTI [Suspect]
     Active Substance: EPTINEZUMAB-JJMR
     Indication: MIGRAINE
     Route: 041
     Dates: start: 20201019
  5. THORAZINE [Concomitant]
     Active Substance: CHLORPROMAZINE
     Indication: MIGRAINE
     Route: 065

REACTIONS (6)
  - Migraine [Unknown]
  - Cholecystectomy [Unknown]
  - Fatigue [Recovering/Resolving]
  - Hemiplegic migraine [Unknown]
  - Influenza like illness [Recovered/Resolved]
  - Wrist surgery [Unknown]

NARRATIVE: CASE EVENT DATE: 20201019
